FAERS Safety Report 5072485-1 (Version None)
Quarter: 2006Q3

REPORT INFORMATION
  Report Type: 
  Country: None (occurrence: None)
  Receive Date: 20060801
  Receipt Date: 20060720
  Transmission Date: 20061208
  Serious: Yes (Other)
  Sender: FDA-Public Use
  Company Number: 2006090196

PATIENT
  Age: 53 Year
  Sex: Female

DRUGS (1)
  1. AROMASIN [Suspect]
     Indication: DRUG USE FOR UNKNOWN INDICATION
     Dosage: 25 MG (25 MG, 1 IN 1 D), ORAL
     Route: 048

REACTIONS (2)
  - CEREBRAL INFARCTION [None]
  - MULTIPLE SCLEROSIS [None]
